FAERS Safety Report 17956526 (Version 4)
Quarter: 2021Q2

REPORT INFORMATION
  Report Type: Report from Study
  Country: None (occurrence: US)
  Receive Date: 20200629
  Receipt Date: 20210629
  Transmission Date: 20210717
  Serious: Yes (Hospitalization, Other)
  Sender: FDA-Public Use
  Company Number: US-ABBVIE-20K-163-3461632-00

PATIENT
  Sex: Male

DRUGS (5)
  1. IMBRUVICA [Suspect]
     Active Substance: IBRUTINIB
     Indication: CHRONIC LYMPHOCYTIC LEUKAEMIA
     Route: 048
  2. VENCLEXTA [Suspect]
     Active Substance: VENETOCLAX
     Indication: CHRONIC LYMPHOCYTIC LEUKAEMIA
     Route: 048
     Dates: start: 20191112
  3. VENCLEXTA [Suspect]
     Active Substance: VENETOCLAX
     Route: 048
  4. VENCLEXTA [Suspect]
     Active Substance: VENETOCLAX
     Route: 048
  5. VENCLEXTA [Suspect]
     Active Substance: VENETOCLAX
     Route: 048
     Dates: start: 20191112

REACTIONS (9)
  - Ocular procedural complication [Not Recovered/Not Resolved]
  - Fatigue [Unknown]
  - Macular hole [Recovered/Resolved]
  - Sinus disorder [Not Recovered/Not Resolved]
  - Skin lesion [Unknown]
  - Hot flush [Unknown]
  - Cataract [Recovering/Resolving]
  - Chronic lymphocytic leukaemia [Unknown]
  - Prostate cancer [Recovered/Resolved]

NARRATIVE: CASE EVENT DATE: 2020
